FAERS Safety Report 23067467 (Version 1)
Quarter: 2023Q4

REPORT INFORMATION
  Report Type: Spontaneous
  Country: GB (occurrence: GB)
  Receive Date: 20231016
  Receipt Date: 20231016
  Transmission Date: 20240110
  Serious: Yes (Other)
  Sender: FDA-Public Use
  Company Number: None

PATIENT
  Age: 57 Year
  Sex: Female
  Weight: 87 kg

DRUGS (11)
  1. LEVEMIR [Suspect]
     Active Substance: INSULIN DETEMIR
     Indication: Product used for unknown indication
     Dosage: UNK( USE AS DIRECTED()
     Dates: start: 20230404
  2. AMLODIPINE [Concomitant]
     Active Substance: AMLODIPINE BESYLATE
     Dosage: 1 TAB QD
     Dates: start: 20230310
  3. ATORVASTATIN [Concomitant]
     Active Substance: ATORVASTATIN
     Dosage: 1 TAB QD AT NIGHT
     Dates: start: 20230310
  4. DOXAZOSIN [Concomitant]
     Active Substance: DOXAZOSIN MESYLATE
     Dosage: 1T BD
     Dates: start: 20230310
  5. EMPAGLIFLOZIN [Concomitant]
     Active Substance: EMPAGLIFLOZIN
     Dosage: 1 TAB QD
     Dates: start: 20230310
  6. HYDROXYZINE [Concomitant]
     Active Substance: HYDROXYZINE HYDROCHLORIDE
     Dosage: 1 TAB EACH NIGHT WHEN REQUIRED
     Dates: start: 20230913
  7. LINAGLIPTIN [Concomitant]
     Active Substance: LINAGLIPTIN
     Dosage: 1 TAB QD
     Dates: start: 20230310
  8. METFORMIN [Concomitant]
     Active Substance: METFORMIN HYDROCHLORIDE
     Dosage: 2 TAB BID
     Dates: start: 20230310
  9. MONTELUKAST [Concomitant]
     Active Substance: MONTELUKAST SODIUM
     Dosage: 1 TAB QD AT NIGHT
     Dates: start: 20230925
  10. PREDNISOLONE [Concomitant]
     Active Substance: PREDNISOLONE
     Dosage: 4/ DAY FOR 7 DAYS
     Dates: start: 20230913, end: 20230920
  11. RAMIPRIL [Concomitant]
     Active Substance: RAMIPRIL
     Dosage: 1 TAB QD
     Dates: start: 20230310

REACTIONS (1)
  - Urticaria [Recovering/Resolving]
